FAERS Safety Report 16892276 (Version 3)
Quarter: 2019Q4

REPORT INFORMATION
  Report Type: Spontaneous
  Country: JP (occurrence: JP)
  Receive Date: 20191007
  Receipt Date: 20191028
  Transmission Date: 20200122
  Serious: Yes (Death, Life-Threatening, Hospitalization, Other)
  Sender: FDA-Public Use
  Company Number: JP-ASTRAZENECA-2019SF42471

PATIENT
  Age: 68 Year
  Sex: Female

DRUGS (1)
  1. LYNPARZA [Suspect]
     Active Substance: OLAPARIB
     Indication: BREAST CANCER
     Route: 048
     Dates: start: 20181126, end: 20190710

REACTIONS (11)
  - Malignant neoplasm progression [Fatal]
  - Platelet count decreased [Not Recovered/Not Resolved]
  - Feeding disorder [Unknown]
  - Subileus [Unknown]
  - Peritonitis [Unknown]
  - Hepatic atrophy [Unknown]
  - Hepatic cirrhosis [Unknown]
  - Ascites [Unknown]
  - Haemoglobin decreased [Not Recovered/Not Resolved]
  - Blood creatine phosphokinase decreased [Unknown]
  - Febrile neutropenia [Not Recovered/Not Resolved]

NARRATIVE: CASE EVENT DATE: 201907
